FAERS Safety Report 10849004 (Version 1)
Quarter: 2015Q1

REPORT INFORMATION
  Report Type: Spontaneous
  Country: US (occurrence: US)
  Receive Date: 20150221
  Receipt Date: 20150221
  Transmission Date: 20150721
  Serious: No
  Sender: FDA-Public Use
  Company Number: US-ELI_LILLY_AND_COMPANY-US201212004072

PATIENT
  Sex: Female

DRUGS (4)
  1. SEASONALE [Concomitant]
     Active Substance: ETHINYL ESTRADIOL\LEVONORGESTREL
     Indication: HORMONE REPLACEMENT THERAPY
     Dosage: UNK
  2. HUMATROPE [Interacting]
     Active Substance: SOMATROPIN
     Indication: GROWTH HORMONE DEFICIENCY
  3. HUMATROPE [Interacting]
     Active Substance: SOMATROPIN
     Indication: HYPOPITUITARISM
     Dosage: 0.9 MG, UNKNOWN
     Route: 065
  4. HUMATROPE [Suspect]
     Active Substance: SOMATROPIN
     Indication: DWARFISM
     Dosage: UNK, UNKNOWN
     Dates: start: 2008

REACTIONS (4)
  - Fatigue [Unknown]
  - Drug dose omission [Unknown]
  - Drug interaction [Unknown]
  - Gastroenteritis viral [Unknown]
